FAERS Safety Report 7809266-9 (Version None)
Quarter: 2011Q4

REPORT INFORMATION
  Report Type: 
  Country: None (occurrence: None)
  Receive Date: 20111012
  Receipt Date: 20111007
  Transmission Date: 20120403
  Serious: No
  Sender: FDA-Public Use
  Company Number: US-B.I. PHARMACEUTICALS,INC./RIDGEFIELD-2011-BP-21661BP

PATIENT
  Age: 79 Year
  Sex: Female
  Weight: 90.72 kg

DRUGS (5)
  1. LIPITOR [Concomitant]
     Dosage: 40 MG
     Dates: start: 20000615
  2. PRADAXA [Suspect]
     Indication: ATRIAL FIBRILLATION
     Dosage: 300 MG
     Route: 048
     Dates: end: 20110902
  3. FLECAINIDE ACETATE [Concomitant]
     Dosage: 200 MG
     Dates: start: 20090320
  4. EFFEXOR XR [Concomitant]
     Dosage: 37.5 MG
     Dates: start: 20010915
  5. COREG [Concomitant]
     Dosage: 25 MG
     Dates: start: 20000615

REACTIONS (6)
  - ABDOMINAL PAIN UPPER [None]
  - GASTROINTESTINAL DISORDER [None]
  - FEELING ABNORMAL [None]
  - NAUSEA [None]
  - ABDOMINAL PAIN [None]
  - DIARRHOEA [None]
